FAERS Safety Report 15616680 (Version 2)
Quarter: 2018Q4

REPORT INFORMATION
  Report Type: Report from Study
  Country: AU (occurrence: AU)
  Receive Date: 20181114
  Receipt Date: 20181129
  Transmission Date: 20190205
  Serious: Yes (Other)
  Sender: FDA-Public Use
  Company Number: AU-JNJFOC-20181104964

PATIENT
  Sex: Female

DRUGS (1)
  1. TREMFYA [Suspect]
     Active Substance: GUSELKUMAB
     Indication: PSORIASIS
     Route: 065

REACTIONS (6)
  - Erythema [Unknown]
  - Skin exfoliation [Unknown]
  - Sunburn [Unknown]
  - Peripheral swelling [Unknown]
  - Rash erythematous [Unknown]
  - Cellulitis [Unknown]
